FAERS Safety Report 19167291 (Version 1)
Quarter: 2021Q2

REPORT INFORMATION
  Report Type: Spontaneous
  Country: US (occurrence: US)
  Receive Date: 20210422
  Receipt Date: 20210422
  Transmission Date: 20210717
  Serious: Yes (Other)
  Sender: FDA-Public Use
  Company Number: US-MACLEODS PHARMACEUTICALS US LTD-MAC2021030906

PATIENT

DRUGS (8)
  1. VALGANCICLOVIR. [Suspect]
     Active Substance: VALGANCICLOVIR
     Indication: CYTOMEGALOVIRUS CHORIORETINITIS
     Dosage: UNK
     Route: 048
  2. INFLIXIMAB [Concomitant]
     Active Substance: INFLIXIMAB
     Indication: CYSTOID MACULAR OEDEMA
  3. FLUOCINONIDE. [Suspect]
     Active Substance: FLUOCINONIDE
     Indication: CYSTOID MACULAR OEDEMA
  4. FOSCARNET [Suspect]
     Active Substance: FOSCARNET
     Indication: CYTOMEGALOVIRUS CHORIORETINITIS
     Dosage: UNK
  5. INFLIXIMAB [Concomitant]
     Active Substance: INFLIXIMAB
     Indication: CHORIORETINITIS
     Dosage: UNK
     Route: 065
  6. MYCOPHENOLATE MOFETIL. [Concomitant]
     Active Substance: MYCOPHENOLATE MOFETIL
     Indication: CHORIORETINITIS
     Dosage: UNK
     Route: 065
  7. MYCOPHENOLATE MOFETIL. [Concomitant]
     Active Substance: MYCOPHENOLATE MOFETIL
     Indication: CYSTOID MACULAR OEDEMA
  8. FLUOCINONIDE. [Suspect]
     Active Substance: FLUOCINONIDE
     Indication: CHORIORETINITIS
     Dosage: UNK, FLUOCINOLONE ACETONIDE IMPLANT

REACTIONS (3)
  - Hypotony of eye [Unknown]
  - Necrotising retinitis [Recovered/Resolved]
  - Cytomegalovirus chorioretinitis [Recovered/Resolved]
